FAERS Safety Report 15188189 (Version 7)
Quarter: 2018Q3

REPORT INFORMATION
  Report Type: Spontaneous
  Country: GB (occurrence: GB)
  Receive Date: 20180724
  Receipt Date: 20180925
  Transmission Date: 20181010
  Serious: Yes (Hospitalization, Other)
  Sender: FDA-Public Use
  Company Number: GB-AUROBINDO-AUR-APL-2018-036210

PATIENT
  Sex: Female

DRUGS (4)
  1. QUETIAPINE FILM?COATED TABLET [Suspect]
     Active Substance: QUETIAPINE
     Indication: AGITATION
     Dosage: WAS TAKEN AGAIN TWO MONTHS AFTER RECOVERY
     Route: 048
  2. RISPERIDONE. [Interacting]
     Active Substance: RISPERIDONE
     Indication: AGITATION
     Dosage: WAS TAKEN AGAIN TWO MONTHS AFTER RECOVERY
     Route: 065
  3. RISPERIDONE. [Interacting]
     Active Substance: RISPERIDONE
     Indication: AGGRESSION
  4. QUETIAPINE FILM?COATED TABLET [Suspect]
     Active Substance: QUETIAPINE
     Indication: AGGRESSION

REACTIONS (9)
  - Pneumonia aspiration [Unknown]
  - Somnolence [Recovering/Resolving]
  - Off label use [Unknown]
  - Acute kidney injury [Unknown]
  - Drug interaction [Recovered/Resolved]
  - Ischaemic stroke [Recovered/Resolved]
  - Dehydration [Recovering/Resolving]
  - Hypophagia [Recovered/Resolved]
  - Product use in unapproved indication [Unknown]
